FAERS Safety Report 4374334-3 (Version None)
Quarter: 2004Q2

REPORT INFORMATION
  Report Type: 
  Country: None (occurrence: None)
  Receive Date: 20040608
  Receipt Date: 20040608
  Transmission Date: 20050107
  Serious: Yes (Life-Threatening)
  Sender: FDA-Public Use
  Company Number: None

PATIENT
  Age: 62 Year
  Sex: Male
  Weight: 95.2554 kg

DRUGS (9)
  1. METFORMIN GENERIC 850 MG [Suspect]
     Indication: BODY MASS INDEX INCREASED
     Dosage: 850 MG BID ORAL
     Route: 048
     Dates: start: 20031024, end: 20040526
  2. METFORMIN GENERIC 850 MG [Suspect]
     Indication: DIABETES MELLITUS NON-INSULIN-DEPENDENT
     Dosage: 850 MG BID ORAL
     Route: 048
     Dates: start: 20031024, end: 20040526
  3. METFORMIN GENERIC 850 MG [Suspect]
     Indication: HYPERLIPIDAEMIA
     Dosage: 850 MG BID ORAL
     Route: 048
     Dates: start: 20031024, end: 20040526
  4. ALPRAZOLAM [Concomitant]
  5. LISINOPRIL [Concomitant]
  6. ASPIRIN [Concomitant]
  7. MULTIVITAMINS CENTRUM SILVER [Concomitant]
  8. VIT E [Concomitant]
  9. SYNTHROID [Concomitant]

REACTIONS (9)
  - APATHY [None]
  - BLOOD GLUCOSE INCREASED [None]
  - FEAR [None]
  - FEELING ABNORMAL [None]
  - LISTLESS [None]
  - PANIC ATTACK [None]
  - PSYCHIATRIC SYMPTOM [None]
  - RELATIONSHIP BREAKDOWN [None]
  - SUICIDAL IDEATION [None]
